FAERS Safety Report 26173157 (Version 1)
Quarter: 2025Q4

REPORT INFORMATION
  Report Type: Report from Study
  Country: CL (occurrence: CL)
  Receive Date: 20251218
  Receipt Date: 20251218
  Transmission Date: 20260118
  Serious: Yes (Hospitalization, Other)
  Sender: BRISTOL-MYERS SQUIBB COMPANY
  Company Number: CL-BRISTOL-MYERS SQUIBB COMPANY-2025-168811

PATIENT
  Age: 54 Year
  Sex: Male

DRUGS (1)
  1. OPDIVO [Suspect]
     Active Substance: NIVOLUMAB
     Indication: Malignant melanoma
     Dosage: CODE UNIT: 100 MG/ML 28 DAYS
     Route: 042
     Dates: end: 20250626

REACTIONS (3)
  - Metastatic malignant melanoma [Recovering/Resolving]
  - Pneumonitis [Recovered/Resolved with Sequelae]
  - Pulmonary fibrosis [Recovering/Resolving]

NARRATIVE: CASE EVENT DATE: 20250901
